FAERS Safety Report 17260844 (Version 2)
Quarter: 2020Q1

REPORT INFORMATION
  Report Type: Report from Study
  Country: US (occurrence: US)
  Receive Date: 20200113
  Receipt Date: 20200117
  Transmission Date: 20200409
  Serious: Yes (Death, Hospitalization)
  Sender: FDA-Public Use
  Company Number: US-DOVA PHARMACEUTICALS INC.-DOV-000400

PATIENT
  Age: 45 Year
  Sex: Female

DRUGS (1)
  1. DOPTELET [Suspect]
     Active Substance: AVATROMBOPAG MALEATE
     Indication: IMMUNE THROMBOCYTOPENIC PURPURA
     Dosage: 60 MG, QD
     Route: 048
     Dates: start: 20181203, end: 20191230

REACTIONS (4)
  - Pulmonary hypertension [Fatal]
  - Septic shock [Fatal]
  - Enterococcal sepsis [Fatal]
  - Hepatorenal syndrome [Fatal]

NARRATIVE: CASE EVENT DATE: 20191227
